FAERS Safety Report 21964755 (Version 1)
Quarter: 2023Q1

REPORT INFORMATION
  Report Type: Spontaneous
  Country: FR (occurrence: FR)
  Receive Date: 20230207
  Receipt Date: 20230207
  Transmission Date: 20230418
  Serious: Yes (Death)
  Sender: FDA-Public Use
  Company Number: FR-JNJFOC-20230165438

PATIENT
  Age: 6 Decade
  Sex: Male

DRUGS (1)
  1. TECLISTAMAB [Suspect]
     Active Substance: TECLISTAMAB
     Indication: Product used for unknown indication
     Route: 065
     Dates: start: 20221104

REACTIONS (2)
  - Escherichia sepsis [Fatal]
  - Intestinal ischaemia [Fatal]
